FAERS Safety Report 6172490-8 (Version None)
Quarter: 2009Q2

REPORT INFORMATION
  Report Type: 
  Country: None (occurrence: None)
  Receive Date: 20090427
  Receipt Date: 20090416
  Transmission Date: 20091009
  Serious: Yes (Hospitalization, Other)
  Sender: FDA-Public Use
  Company Number: 2009-01255

PATIENT
  Age: 79 Year
  Sex: Male
  Weight: 72 kg

DRUGS (7)
  1. VELCADE [Suspect]
     Indication: ACUTE MYELOID LEUKAEMIA
     Dosage: 1 MG/M2, INTRAVENOUS
     Route: 042
     Dates: start: 20070527, end: 20070704
  2. TIPIFAMIB(TIPIFAMIB) [Suspect]
     Indication: ACUTE MYELOID LEUKAEMIA
     Dosage: 600 MG
  3. OMEPRAZOLE [Concomitant]
  4. AMPHOTERICIN B [Concomitant]
  5. CIPROFLOXACIN [Concomitant]
  6. NIFEDIPINE [Concomitant]
  7. ALLOPURINOL [Concomitant]

REACTIONS (4)
  - CONFUSIONAL STATE [None]
  - DIVERTICULITIS [None]
  - PYREXIA [None]
  - RENAL FAILURE [None]
